FAERS Safety Report 23240222 (Version 2)
Quarter: 2024Q1

REPORT INFORMATION
  Report Type: Report from Study
  Country: AU (occurrence: AU)
  Receive Date: 20231129
  Receipt Date: 20240207
  Transmission Date: 20240409
  Serious: Yes (Hospitalization)
  Sender: FDA-Public Use
  Company Number: AU-002147023-NVSC2023AU250909

PATIENT
  Sex: Male

DRUGS (2)
  1. COSENTYX [Suspect]
     Active Substance: SECUKINUMAB
     Indication: Psoriasis
     Dosage: UNK
     Route: 058
     Dates: start: 20230809
  2. COSENTYX [Suspect]
     Active Substance: SECUKINUMAB
     Dosage: UNK, EVERY TWO WEEKS (FORTNIGHT APART)
     Route: 058

REACTIONS (3)
  - Inflammatory bowel disease [Unknown]
  - Hernia [Unknown]
  - Psoriasis [Unknown]
